FAERS Safety Report 9895640 (Version 2)
Quarter: 2014Q1

REPORT INFORMATION
  Report Type: Spontaneous
  Country: US (occurrence: US)
  Receive Date: 20140213
  Receipt Date: 20140213
  Transmission Date: 20141002
  Serious: No
  Sender: FDA-Public Use
  Company Number: US-BRISTOL-MYERS SQUIBB COMPANY-17392598

PATIENT
  Age: 32 Year
  Sex: Female
  Weight: 99.77 kg

DRUGS (4)
  1. ABATACEPT SUBQ INJECTION 125MG/ML [Suspect]
     Indication: PSORIATIC ARTHROPATHY
     Dosage: LAST INJECTION WAS ON 8FEB2013
     Route: 058
  2. ABATACEPT SUBQ INJECTION 125MG/ML [Suspect]
     Indication: RHEUMATOID ARTHRITIS
     Dosage: LAST INJECTION WAS ON 8FEB2013
     Route: 058
  3. VICODIN [Concomitant]
  4. JUNEL FE [Concomitant]
     Indication: CONTRACEPTION

REACTIONS (3)
  - Incorrect product storage [Unknown]
  - Upper respiratory tract infection [Recovered/Resolved]
  - Drug dose omission [Unknown]
